FAERS Safety Report 6356368-2 (Version None)
Quarter: 2009Q3

REPORT INFORMATION
  Report Type: 
  Country: None (occurrence: None)
  Receive Date: 20090911
  Receipt Date: 20090911
  Transmission Date: 20100115
  Serious: Yes (Hospitalization)
  Sender: FDA-Public Use
  Company Number: None

PATIENT
  Sex: Female
  Weight: 92.9874 kg

DRUGS (2)
  1. FEMARA [Suspect]
     Indication: BREAST CANCER
     Dosage: 1 TABLET DAILY PO
     Route: 048
     Dates: start: 20030401, end: 20090910
  2. ROPINOROLE 1MG COREPHARMA [Suspect]
     Dosage: 1 TABLET DAILY PO
     Route: 048

REACTIONS (2)
  - CHEST PAIN [None]
  - PAIN IN JAW [None]
